FAERS Safety Report 10537141 (Version 2)
Quarter: 2014Q4

REPORT INFORMATION
  Report Type: Report from Study
  Country: US (occurrence: US)
  Receive Date: 20141022
  Receipt Date: 20141022
  Transmission Date: 20150529
  Serious: Yes (Other)
  Sender: FDA-Public Use
  Company Number: US-BAXTER-2014BAX060431

PATIENT
  Age: 3 Year
  Sex: Male
  Weight: 14.98 kg

DRUGS (3)
  1. GAMMAGARD LIQUID [Suspect]
     Active Substance: HUMAN IMMUNOGLOBULIN G
     Indication: IMMUNODEFICIENCY COMMON VARIABLE
     Route: 058
     Dates: start: 20140727, end: 20140727
  2. BENADRYL [Concomitant]
     Active Substance: DIPHENHYDRAMINE HYDROCHLORIDE
     Indication: PREMEDICATION
     Dosage: 1.5 TABLE SPOON
     Route: 048
     Dates: start: 20140727, end: 20140727
  3. TYLENOL [Concomitant]
     Active Substance: ACETAMINOPHEN
     Indication: PREMEDICATION
     Dosage: 1.5 TABLE SPOON
     Route: 048
     Dates: start: 20140727, end: 20140727

REACTIONS (3)
  - Fall [Recovered/Resolved]
  - Lip infection [Recovered/Resolved]
  - Lip injury [Recovered/Resolved]

NARRATIVE: CASE EVENT DATE: 20140729
